FAERS Safety Report 24987791 (Version 2)
Quarter: 2025Q1

REPORT INFORMATION
  Report Type: Report from Study
  Country: US (occurrence: US)
  Receive Date: 20250219
  Receipt Date: 20250326
  Transmission Date: 20250408
  Serious: Yes (Hospitalization, Other)
  Sender: ARDELYX
  Company Number: US-ARDELYX-2025ARDX000648

PATIENT
  Sex: Male

DRUGS (3)
  1. XPHOZAH [Suspect]
     Active Substance: TENAPANOR HYDROCHLORIDE
     Indication: Chronic kidney disease
     Route: 048
     Dates: start: 202408, end: 202412
  2. CALCIUM ACETATE [Concomitant]
     Active Substance: CALCIUM ACETATE
     Indication: Hyperphosphataemia
     Route: 065
  3. RENVELA [Concomitant]
     Active Substance: SEVELAMER CARBONATE
     Indication: Hyperphosphataemia
     Route: 065

REACTIONS (1)
  - Rectal haemorrhage [Recovered/Resolved]

NARRATIVE: CASE EVENT DATE: 20241220
